FAERS Safety Report 8793325 (Version 4)
Quarter: 2012Q4

REPORT INFORMATION
  Report Type: 
  Country: JP (occurrence: JP)
  Receive Date: 20120917
  Receipt Date: 20121210
  Transmission Date: 20130627
  Serious: Yes (Life-Threatening, Other)
  Sender: FDA-Public Use
  Company Number: JP-ROCHE-1083632

PATIENT
  Age: 18 None
  Sex: Female
  Weight: 45 kg

DRUGS (6)
  1. ACTEMRA [Suspect]
     Indication: STILL^S DISEASE ADULT ONSET
     Route: 041
     Dates: start: 20120613, end: 20120613
  2. ACTEMRA [Suspect]
     Indication: OFF LABEL USE
  3. PREDONINE [Suspect]
     Indication: STILL^S DISEASE ADULT ONSET
     Route: 048
     Dates: start: 20110707
  4. LOXONIN [Concomitant]
     Indication: STILL^S DISEASE ADULT ONSET
     Route: 048
     Dates: start: 20120306, end: 20120702
  5. SELBEX [Concomitant]
     Indication: GASTRITIS
     Route: 048
     Dates: start: 20120525, end: 20120703
  6. EDIROL [Concomitant]
     Indication: OSTEOPOROSIS
     Route: 048
     Dates: start: 20120606, end: 20120703

REACTIONS (6)
  - Sepsis [Recovered/Resolved]
  - Pulmonary alveolar haemorrhage [Recovered/Resolved]
  - Pancytopenia [Unknown]
  - Panniculitis [Unknown]
  - Disseminated intravascular coagulation [Unknown]
  - Folliculitis [Recovered/Resolved]
